FAERS Safety Report 21016191 (Version 1)
Quarter: 2022Q2

REPORT INFORMATION
  Report Type: Report from Study
  Country: FR (occurrence: None)
  Receive Date: 20220628
  Receipt Date: 20220628
  Transmission Date: 20220720
  Serious: Yes (Hospitalization)
  Sender: FDA-Public Use
  Company Number: FR-ROCHE-3117252

PATIENT
  Age: 74 Year
  Weight: 66 kg

DRUGS (2)
  1. ATEZOLIZUMAB [Suspect]
     Active Substance: ATEZOLIZUMAB
     Indication: Bladder transitional cell carcinoma
     Dosage: DATE OF LAST  DOSE (1200  MG) ADMINISTERED BEFORE OCCURRENCE OF AE  IS 15/SEP/2020?CUMULATIVE DOSE S
     Route: 041
     Dates: start: 20200915
  2. BCG VACCINE [Suspect]
     Active Substance: BCG VACCINE
     Indication: Bladder transitional cell carcinoma
     Dosage: DATE OF LAST DOSE (50 ML) PRIOR TO  EVENT IS 29/SEP/2020?CUMULATIVE DOSE SINCE THE FIRST ADMINISTRAT
     Route: 042
     Dates: start: 20200915

REACTIONS (1)
  - Orchitis [Recovering/Resolving]

NARRATIVE: CASE EVENT DATE: 20200930
